FAERS Safety Report 5981839-8 (Version None)
Quarter: 2008Q4

REPORT INFORMATION
  Report Type: 
  Country: None (occurrence: None)
  Receive Date: 20081202
  Receipt Date: 20081121
  Transmission Date: 20090506
  Serious: Yes (Death)
  Sender: FDA-Public Use
  Company Number: 430027K08USA

PATIENT
  Age: 84 Year
  Sex: Female

DRUGS (2)
  1. NOVANTRONE [Suspect]
     Indication: OFF LABEL USE
     Dates: start: 20080201, end: 20080101
  2. CHEMOTHERAPEUTIC AGENT (OTHER CHEMOTHERAPEUTICS) [Suspect]
     Indication: NON-HODGKIN'S LYMPHOMA
     Dates: start: 20080201

REACTIONS (2)
  - OFF LABEL USE [None]
  - PNEUMONIA [None]
